FAERS Safety Report 16718186 (Version 1)
Quarter: 2019Q3

REPORT INFORMATION
  Report Type: Spontaneous
  Country: FR (occurrence: FR)
  Receive Date: 20190820
  Receipt Date: 20190820
  Transmission Date: 20191005
  Serious: Yes (Hospitalization, Other)
  Sender: FDA-Public Use
  Company Number: FR-SUN PHARMACEUTICAL INDUSTRIES LTD-2019RR-217943

PATIENT
  Age: 84 Year
  Sex: Male

DRUGS (2)
  1. EZETIMIBE. [Suspect]
     Active Substance: EZETIMIBE
     Indication: PRODUCT USED FOR UNKNOWN INDICATION
     Dosage: UNK
     Route: 065
  2. ATORVASTATIN [Suspect]
     Active Substance: ATORVASTATIN
     Indication: PROPHYLAXIS
     Dosage: 10 MILLIGRAM, UNK
     Route: 065
     Dates: start: 2017

REACTIONS (7)
  - Myocardial ischaemia [Unknown]
  - Dyspnoea [Unknown]
  - Malaise [Unknown]
  - Ventricular hypokinesia [Unknown]
  - Angina pectoris [Unknown]
  - Myalgia [Unknown]
  - Drug tolerance decreased [Unknown]
